FAERS Safety Report 22361730 (Version 1)
Quarter: 2023Q2

REPORT INFORMATION
  Report Type: Spontaneous
  Country: RO (occurrence: RO)
  Receive Date: 20230524
  Receipt Date: 20230524
  Transmission Date: 20230721
  Serious: Yes (Hospitalization)
  Sender: FDA-Public Use
  Company Number: RO-ROCHE-3344359

PATIENT
  Age: 35 Year
  Sex: Female

DRUGS (5)
  1. ETOPOSIDE [Suspect]
     Active Substance: ETOPOSIDE
     Indication: Small cell lung cancer
     Dosage: ON D1 AND D3
     Route: 065
  2. CARBOPLATIN [Suspect]
     Active Substance: CARBOPLATIN
     Indication: Small cell lung cancer
     Dosage: AUC 5 - D1
     Route: 065
  3. TECENTRIQ [Suspect]
     Active Substance: ATEZOLIZUMAB
     Indication: Small cell lung cancer
     Dosage: 4 SERIES UNTIL UNKNOWN DATE OF JUL/2021?1200MG
     Route: 065
     Dates: start: 20210427
  4. PEGFILGRASTIM [Concomitant]
     Active Substance: PEGFILGRASTIM
     Indication: Product used for unknown indication
     Dosage: D4
  5. AKYNZEO [Concomitant]
     Indication: Product used for unknown indication
     Dosage: 300 MG/0.5 MG- D1

REACTIONS (5)
  - Transaminases increased [None]
  - Fatigue [None]
  - Asthenia [None]
  - Pyrexia [None]
  - Alopecia [None]

NARRATIVE: CASE EVENT DATE: 20210725
